FAERS Safety Report 18225326 (Version 1)
Quarter: 2020Q3

REPORT INFORMATION
  Report Type: Spontaneous
  Country: US (occurrence: US)
  Receive Date: 20200903
  Receipt Date: 20200903
  Transmission Date: 20201103
  Serious: No
  Sender: FDA-Public Use
  Company Number: US-LUPIN PHARMACEUTICALS INC.-2020-03495

PATIENT
  Age: 55 Year
  Sex: Female
  Weight: 58.05 kg

DRUGS (3)
  1. BUDESONIDE INHALATION SUSPENSION, 0.5 MG/2 ML [Suspect]
     Active Substance: BUDESONIDE
     Indication: CHRONIC SINUSITIS
     Dosage: UNK UNK, QD (0.5 MG/2 ML,1 VIAL DAILY?MIX WITH SALINE FOR NASAL IRRIGATION)
     Route: 045
  2. BUDESONIDE INHALATION SUSPENSION, 0.5 MG/2 ML [Suspect]
     Active Substance: BUDESONIDE
     Indication: NASAL IRRIGATION
     Dosage: UNK UNK, QD (1 VIAL DAILY?MIX WITH SALINE FOR NASAL IRRIGATION)
     Route: 045
  3. BUDESONIDE INHALATION SUSPENSION, 0.5 MG/2 ML [Suspect]
     Active Substance: BUDESONIDE
     Dosage: UNK UNK, QD (1 VIAL DAILY?MIX WITH SALINE FOR NASAL IRRIGATION)
     Route: 045

REACTIONS (2)
  - Product prescribing error [Unknown]
  - No adverse event [Unknown]

NARRATIVE: CASE EVENT DATE: 20200710
